FAERS Safety Report 6059704-X (Version None)
Quarter: 2009Q1

REPORT INFORMATION
  Report Type: 
  Country: None (occurrence: None)
  Receive Date: 20090130
  Receipt Date: 20090120
  Transmission Date: 20090719
  Serious: Yes (Death)
  Sender: FDA-Public Use
  Company Number: US-ROCHE-601214

PATIENT
  Sex: Male

DRUGS (3)
  1. PEG-INTERFERON ALFA 2A (RO 25-8310) [Suspect]
     Dosage: DOSAGE BLINDED FOR FIRST TWELVE WEEKS.
     Route: 058
  2. PEG-INTERFERON ALFA 2A (RO 25-8310) [Suspect]
     Route: 058
  3. RIBAVIRIN [Suspect]
     Dosage: DOSE WAS BLINDED.
     Route: 048

REACTIONS (1)
  - DEATH [None]
